FAERS Safety Report 10355542 (Version 1)
Quarter: 2014Q3

REPORT INFORMATION
  Report Type: Spontaneous
  Country: US (occurrence: US)
  Receive Date: 20140731
  Receipt Date: 20140731
  Transmission Date: 20150326
  Serious: Yes (Other)
  Sender: FDA-Public Use
  Company Number: US-PFIZER INC-2014211963

PATIENT
  Age: 90 Year
  Sex: Female
  Weight: 82.54 kg

DRUGS (5)
  1. NIFEDIPINE. [Concomitant]
     Active Substance: NIFEDIPINE
     Dosage: UNK
  2. ARTHROTEC [Concomitant]
     Active Substance: DICLOFENAC SODIUM\MISOPROSTOL
     Dosage: UNK
  3. RAMIPRIL. [Concomitant]
     Active Substance: RAMIPRIL
     Dosage: UNK
  4. DETROL LA [Suspect]
     Active Substance: TOLTERODINE TARTRATE
     Indication: ARTHRITIS
     Dosage: 50 MG, 2X/DAY
     Route: 048
     Dates: start: 2014, end: 201403
  5. LEVOTHYROXINE [Concomitant]
     Active Substance: LEVOTHYROXINE
     Indication: THYROID DISORDER
     Dosage: UNK

REACTIONS (3)
  - Sciatica [Unknown]
  - Pain [Unknown]
  - Cataract [Unknown]

NARRATIVE: CASE EVENT DATE: 2014
